FAERS Safety Report 5283263-2 (Version None)
Quarter: 2007Q1

REPORT INFORMATION
  Report Type: 
  Country: None (occurrence: None)
  Receive Date: 20070327
  Receipt Date: 20070319
  Transmission Date: 20070707
  Serious: Yes (Other)
  Sender: FDA-Public Use
  Company Number: 2007EN000021

PATIENT
  Age: 7 Year
  Sex: Female

DRUGS (4)
  1. ONCASPAR [Suspect]
     Indication: B-CELL TYPE ACUTE LEUKAEMIA
     Dosage: 2500 IU; IM
     Route: 030
  2. CYTARABINE [Suspect]
     Indication: ACUTE LYMPHOCYTIC LEUKAEMIA
     Dosage: 70 MG; IT
     Route: 038
  3. VINCRISTINE [Suspect]
     Indication: ACUTE LYMPHOCYTIC LEUKAEMIA
     Dosage: 1.5 MG/M2; IV
     Route: 042
  4. DEXAMETHASONE [Concomitant]

REACTIONS (8)
  - APHASIA [None]
  - BRAIN OEDEMA [None]
  - CEREBROVASCULAR SPASM [None]
  - HALLUCINATION, VISUAL [None]
  - INCONTINENCE [None]
  - MUSCULAR WEAKNESS [None]
  - NUCLEAR MAGNETIC RESONANCE IMAGING BRAIN ABNORMAL [None]
  - SCREAMING [None]
